FAERS Safety Report 6133457-9 (Version None)
Quarter: 2009Q1

REPORT INFORMATION
  Report Type: 
  Country: None (occurrence: None)
  Receive Date: 20090326
  Receipt Date: 20090318
  Transmission Date: 20090719
  Serious: Yes (Hospitalization)
  Sender: FDA-Public Use
  Company Number: PHHO2009JP00508

PATIENT
  Sex: Female

DRUGS (19)
  1. NEORAL [Suspect]
     Indication: RENAL TRANSPLANT
     Dosage: 100 MG, BID
     Route: 048
     Dates: start: 20081207, end: 20090102
  2. NEORAL [Suspect]
     Dosage: 75 MG, BID
     Route: 048
     Dates: start: 20090102, end: 20090105
  3. NEORAL [Suspect]
     Dosage: 100 MG, BID
     Route: 048
     Dates: start: 20090105, end: 20090106
  4. NEORAL [Suspect]
     Dosage: 125 MG, BID
     Route: 048
     Dates: start: 20090106, end: 20090107
  5. NEORAL [Suspect]
     Dosage: 175 MG, BID
     Route: 048
     Dates: start: 20090107, end: 20090109
  6. NEORAL [Suspect]
     Dosage: 150 MG, BID
     Route: 048
     Dates: start: 20090109
  7. MYCOPHENOLATE MOFETIL [Suspect]
     Indication: RENAL TRANSPLANT
     Dosage: 2 G, QD
     Route: 048
     Dates: start: 20081202, end: 20090116
  8. MYCOPHENOLATE MOFETIL [Suspect]
     Dosage: 1 G, QD
     Route: 048
     Dates: start: 20090116, end: 20090124
  9. MYCOPHENOLATE MOFETIL [Suspect]
     Dosage: 500 MG
     Route: 048
     Dates: start: 20090125
  10. MEDROL [Suspect]
  11. BAKTAR [Suspect]
  12. ZOVIRAX [Suspect]
  13. FUNGIZONE [Suspect]
  14. NEUER [Suspect]
     Indication: GASTRITIS PROPHYLAXIS
  15. MALFA [Suspect]
     Indication: GASTRITIS PROPHYLAXIS
  16. TAKEPRON [Suspect]
     Indication: GASTRITIS PROPHYLAXIS
  17. ISODINE [Suspect]
     Indication: INFECTION PROPHYLAXIS
  18. URINORM [Suspect]
     Indication: BLOOD URIC ACID INCREASED
  19. ALLOID [Concomitant]

REACTIONS (12)
  - ABDOMINAL PAIN [None]
  - AXILLARY PAIN [None]
  - BLOOD SODIUM DECREASED [None]
  - CYTOMEGALOVIRUS INFECTION [None]
  - DECREASED APPETITE [None]
  - DIARRHOEA [None]
  - ELECTROLYTE IMBALANCE [None]
  - NAUSEA [None]
  - NEPHROLITHIASIS [None]
  - RENAL TUBULAR DISORDER [None]
  - RESIDUAL URINE [None]
  - VOMITING [None]
